FAERS Safety Report 20961309 (Version 1)
Quarter: 2022Q2

REPORT INFORMATION
  Report Type: Spontaneous
  Country: US (occurrence: None)
  Receive Date: 20220614
  Receipt Date: 20220614
  Transmission Date: 20220721
  Serious: Yes (Hospitalization)
  Sender: FDA-Public Use
  Company Number: None

PATIENT
  Sex: Female

DRUGS (3)
  1. IMATINIB [Suspect]
     Active Substance: IMATINIB
     Indication: Small intestine carcinoma
     Dosage: FREQUENCY : DAILY;?
     Route: 048
     Dates: start: 20200205
  2. IMATINIB [Suspect]
     Active Substance: IMATINIB
     Dosage: FREQUENCY : DAILY;?
     Route: 048
  3. MUCINEX [Concomitant]
     Active Substance: GUAIFENESIN

REACTIONS (7)
  - Vomiting [None]
  - Diarrhoea [None]
  - Muscle spasms [None]
  - Pain [None]
  - Nausea [None]
  - Myalgia [None]
  - Product dose omission issue [None]
